FAERS Safety Report 8037434-2 (Version None)
Quarter: 2012Q1

REPORT INFORMATION
  Report Type: 
  Country: None (occurrence: None)
  Receive Date: 20120111
  Receipt Date: 20120106
  Transmission Date: 20120608
  Serious: Yes (Hospitalization, Other)
  Sender: FDA-Public Use
  Company Number: FR-ABBOTT-12P-056-0890084-00

PATIENT
  Sex: Male

DRUGS (2)
  1. DEBRIDAT [Concomitant]
     Indication: PRODUCT USED FOR UNKNOWN INDICATION
  2. HUMIRA [Suspect]
     Indication: CROHN'S DISEASE
     Dates: start: 20071201

REACTIONS (14)
  - ARTHRALGIA [None]
  - RED BLOOD CELL COUNT DECREASED [None]
  - POLYCYTHAEMIA [None]
  - RESTRICTIVE PULMONARY DISEASE [None]
  - LUNG DISORDER [None]
  - OBSTRUCTIVE AIRWAYS DISORDER [None]
  - LYMPHADENOPATHY MEDIASTINAL [None]
  - DYSPNOEA EXERTIONAL [None]
  - COUGH [None]
  - PULMONARY SARCOIDOSIS [None]
  - INTERSTITIAL LUNG DISEASE [None]
  - BRONCHITIS [None]
  - DYSPNOEA [None]
  - HAEMOGLOBIN INCREASED [None]
